FAERS Safety Report 7786992-1 (Version None)
Quarter: 2011Q3

REPORT INFORMATION
  Report Type: 
  Country: None (occurrence: None)
  Receive Date: 20110929
  Receipt Date: 20110921
  Transmission Date: 20111222
  Serious: Yes (Hospitalization)
  Sender: FDA-Public Use
  Company Number: US-UCBSA-041847

PATIENT
  Sex: Male
  Weight: 136.1 kg

DRUGS (3)
  1. ALBUTEROL [Concomitant]
     Indication: ASTHMA
     Dosage: AS NECESSARY; FROM SEVERAL YEARS; ROUTE : INHALED
  2. CIMZIA [Suspect]
     Indication: RHEUMATOID ARTHRITIS
     Dosage: DOSE: 2 SHOTS; UNIT: MG; FREQUENCY: Q MONTH
     Route: 058
     Dates: start: 20110601
  3. NAPROXEN [Concomitant]
     Indication: RHEUMATOID ARTHRITIS
     Dosage: FROM MANY YEARS
     Route: 048

REACTIONS (5)
  - COUGH [None]
  - OXYGEN SATURATION DECREASED [None]
  - OEDEMA PERIPHERAL [None]
  - PRODUCTIVE COUGH [None]
  - DYSPNOEA [None]
